FAERS Safety Report 13212343 (Version 1)
Quarter: 2017Q1

REPORT INFORMATION
  Report Type: Spontaneous
  Country: US (occurrence: US)
  Receive Date: 20170209
  Receipt Date: 20170209
  Transmission Date: 20170428
  Serious: No
  Sender: FDA-Public Use
  Company Number: US-ALLERGAN-1653248US

PATIENT
  Age: 38 Year
  Sex: Female
  Weight: 74.83 kg

DRUGS (2)
  1. BOTOX [Suspect]
     Active Substance: ONABOTULINUMTOXINA
     Indication: MIGRAINE
     Dosage: UNK UNK, SINGLE
     Route: 030
     Dates: start: 20160328, end: 20160328
  2. FLONASE [Concomitant]
     Active Substance: FLUTICASONE PROPIONATE
     Indication: SINUSITIS
     Dosage: UNK
     Route: 045

REACTIONS (8)
  - Asthenia [Unknown]
  - Neck pain [Unknown]
  - Neck mass [Unknown]
  - Injection site pain [Recovered/Resolved]
  - Eyelid ptosis [Not Recovered/Not Resolved]
  - Headache [Unknown]
  - Musculoskeletal pain [Unknown]
  - Muscular weakness [Unknown]

NARRATIVE: CASE EVENT DATE: 20160328
